FAERS Safety Report 8283608-5 (Version None)
Quarter: 2012Q2

REPORT INFORMATION
  Report Type: 
  Country: None (occurrence: None)
  Receive Date: 20120413
  Receipt Date: 20120405
  Transmission Date: 20120825
  Serious: No
  Sender: FDA-Public Use
  Company Number: US-B.I. PHARMACEUTICALS,INC./RIDGEFIELD-2012-BP-06418BP

PATIENT
  Sex: Female

DRUGS (4)
  1. ROPINIROLE [Concomitant]
     Indication: PARKINSON'S DISEASE
     Route: 048
  2. MICARDIS [Suspect]
     Indication: HYPERTENSION
     Dosage: 80 MG
     Route: 048
     Dates: start: 20080101
  3. PRIMIDONE [Concomitant]
     Indication: PARKINSON'S DISEASE
     Route: 048
  4. METOPROLOL TARTRATE [Concomitant]
     Indication: HYPERTENSION
     Route: 048

REACTIONS (2)
  - DUODENAL ULCER [None]
  - MACULAR DEGENERATION [None]
